FAERS Safety Report 4293953-6 (Version None)
Quarter: 2004Q1

REPORT INFORMATION
  Report Type: 
  Country: None (occurrence: None)
  Receive Date: 20040212
  Receipt Date: 20040128
  Transmission Date: 20041129
  Serious: Yes (Other)
  Sender: FDA-Public Use
  Company Number: 2004006141

PATIENT
  Age: 39 Year
  Sex: Female
  Weight: 78.0187 kg

DRUGS (5)
  1. LISTERINE (EUCALYPTOL, MENTHOL, METHYL SALICYLATE, THYMOL [Suspect]
     Indication: BREATH ODOUR
     Dosage: ONE CAPFUL TWICE DAILY, ORAL
     Route: 048
  2. CETIRIZINE HCL [Concomitant]
  3. CLONAZEPAM [Concomitant]
  4. MORPHINE [Concomitant]
  5. TIZANIDINE HCL [Concomitant]

REACTIONS (3)
  - HYPERSENSITIVITY [None]
  - OEDEMA MOUTH [None]
  - OROPHARYNGEAL SWELLING [None]
